FAERS Safety Report 10306628 (Version 1)
Quarter: 2014Q3

REPORT INFORMATION
  Report Type: Spontaneous
  Country: US (occurrence: US)
  Receive Date: 20140715
  Receipt Date: 20140715
  Transmission Date: 20150326
  Serious: No
  Sender: FDA-Public Use
  Company Number: US-PFIZER INC-2014195350

PATIENT
  Age: 63 Year
  Sex: Female
  Weight: 57.14 kg

DRUGS (4)
  1. ESTROGEN [Concomitant]
     Active Substance: ESTRONE\SUS SCROFA OVARY
     Dosage: UNK
  2. PRISTIQ EXTENDED RELEASE [Suspect]
     Active Substance: DESVENLAFAXINE SUCCINATE
     Indication: ANXIETY
     Dosage: 50 MG, DAILY
     Dates: start: 201403, end: 2014
  3. ARMOUR THYROID [Concomitant]
     Active Substance: THYROID, PORCINE\THYROID, UNSPECIFIED
     Dosage: 50 MG, UNK
  4. PROGESTERONE. [Concomitant]
     Active Substance: PROGESTERONE
     Dosage: UNK

REACTIONS (7)
  - Irritability [Unknown]
  - Feeling abnormal [Unknown]
  - Disturbance in attention [Unknown]
  - Thirst [Unknown]
  - Tremor [Unknown]
  - Distractibility [Unknown]
  - Headache [Unknown]

NARRATIVE: CASE EVENT DATE: 2014
